FAERS Safety Report 14082713 (Version 1)
Quarter: 2017Q4

REPORT INFORMATION
  Report Type: Spontaneous
  Country: DK (occurrence: DK)
  Receive Date: 20171013
  Receipt Date: 20171013
  Transmission Date: 20180321
  Serious: Yes (Other)
  Sender: FDA-Public Use
  Company Number: DK-TEVA-813917ACC

PATIENT
  Age: 50 Year
  Sex: Female

DRUGS (2)
  1. TRAMADOL ^ACTAVIS^ [Suspect]
     Active Substance: TRAMADOL
     Indication: PROCEDURAL PAIN
     Dosage: DOSAGE: 50 MG AS NEEDED, NO MORE THAN 3 TIMES DAILY. STRENGTH: 50 MG
     Route: 048
     Dates: start: 20170918, end: 20170919
  2. IBUPROFEN ^TEVA^ [Concomitant]
     Active Substance: IBUPROFEN
     Indication: PROCEDURAL PAIN
     Dosage: 1 TABLET AS REQUIRED, NO MORE THAN 3 TIMES DAILY, STRENGTH: 400 MG
     Route: 048
     Dates: start: 20170917

REACTIONS (3)
  - Throat tightness [Recovered/Resolved]
  - Pruritus [Recovered/Resolved]
  - Rash generalised [Recovered/Resolved]

NARRATIVE: CASE EVENT DATE: 20170919
